FAERS Safety Report 9395091 (Version 1)
Quarter: 2013Q3

REPORT INFORMATION
  Report Type: Spontaneous
  Country: IT (occurrence: IT)
  Receive Date: 20130711
  Receipt Date: 20130711
  Transmission Date: 20140515
  Serious: Yes (Hospitalization)
  Sender: FDA-Public Use
  Company Number: IT-NOVOPROD-382320

PATIENT
  Age: 86 Year
  Sex: Male

DRUGS (10)
  1. NOVORAPID PENFILL [Suspect]
     Indication: DIABETES MELLITUS
     Dosage: 15 U, QD
     Route: 058
     Dates: start: 20130101, end: 20130703
  2. NOVOMIX [Suspect]
     Indication: DIABETES MELLITUS
     Dosage: 20 U, QD
     Route: 058
     Dates: start: 20130101, end: 20130703
  3. BISOPROLOLO EMIFUMARATO [Concomitant]
     Dosage: 5 MG
     Route: 065
  4. ALIFLUS [Concomitant]
     Dosage: 4 POSOLOGICAL UNIT
     Route: 055
  5. TRENTAL [Concomitant]
     Dosage: UNKNOWN
     Route: 065
  6. COUMADIN                           /00014802/ [Concomitant]
     Dosage: UNKNOWN
     Route: 065
  7. TRIATEC                            /00116401/ [Concomitant]
     Dosage: UNKNOWN
     Route: 065
  8. ALDACTONE                          /00006201/ [Concomitant]
     Dosage: UNKNOWN
     Route: 065
  9. MINITRAN                           /00003201/ [Concomitant]
     Dosage: UNKNOWN
     Route: 062
  10. LASIX                              /00032601/ [Concomitant]
     Dosage: 4 TAB, QD
     Route: 065

REACTIONS (2)
  - Hypoglycaemia [Recovered/Resolved]
  - Sopor [Recovered/Resolved]
